FAERS Safety Report 20831022 (Version 1)
Quarter: 2022Q2

REPORT INFORMATION
  Report Type: Spontaneous
  Country: US (occurrence: US)
  Receive Date: 20220515
  Receipt Date: 20220515
  Transmission Date: 20220720
  Serious: No
  Sender: FDA-Public Use
  Company Number: US-SA-SAC20220510000451

PATIENT
  Age: 47 Year
  Sex: Female

DRUGS (3)
  1. DUPIXENT [Suspect]
     Active Substance: DUPILUMAB
     Indication: Psoriasis
     Dosage: 300 MG/2 ML INJECT 1 SYRINGE UNDER THE SKIN EVERY TWO WEEKS
     Route: 058
     Dates: start: 20220222
  2. ACYCLOVIR [Concomitant]
     Active Substance: ACYCLOVIR
     Dosage: UNK
  3. FOSTEUM PLUS [Concomitant]
     Dosage: UNK

REACTIONS (4)
  - Arthralgia [Recovered/Resolved]
  - Unevaluable event [Recovered/Resolved]
  - Psoriasis [Not Recovered/Not Resolved]
  - Product use in unapproved indication [Unknown]

NARRATIVE: CASE EVENT DATE: 20220301
